FAERS Safety Report 8169719-3 (Version None)
Quarter: 2012Q1

REPORT INFORMATION
  Report Type: 
  Country: None (occurrence: None)
  Receive Date: 20120228
  Receipt Date: 20120216
  Transmission Date: 20120608
  Serious: Yes (Other)
  Sender: FDA-Public Use
  Company Number: BR-JNJFOC-20120210016

PATIENT
  Age: 45 Year
  Sex: Female
  Weight: 86 kg

DRUGS (4)
  1. DIOVAN TRIPLO [Concomitant]
     Indication: HYPERTENSION
     Route: 048
  2. LEVOTHYROXINE SODIUM [Concomitant]
     Indication: HORMONE REPLACEMENT THERAPY
     Route: 048
  3. REMICADE [Suspect]
     Route: 042
     Dates: start: 20100101
  4. REMICADE [Suspect]
     Indication: PSORIASIS
     Route: 042
     Dates: start: 20111231

REACTIONS (11)
  - DEPRESSION [None]
  - ABDOMINAL PAIN [None]
  - BLOOD CHOLESTEROL INCREASED [None]
  - SKIN DISCOLOURATION [None]
  - OEDEMA PERIPHERAL [None]
  - INFUSION RELATED REACTION [None]
  - MYALGIA [None]
  - LIP DISCOLOURATION [None]
  - SOMNOLENCE [None]
  - NAUSEA [None]
  - ABDOMINAL DISTENSION [None]
